FAERS Safety Report 24348370 (Version 1)
Quarter: 2024Q3

REPORT INFORMATION
  Report Type: Spontaneous
  Country: AU (occurrence: AU)
  Receive Date: 20240923
  Receipt Date: 20240923
  Transmission Date: 20241017
  Serious: Yes (Life-Threatening, Disabling)
  Sender: JOHNSON AND JOHNSON
  Company Number: AU-JNJFOC-20240940733

PATIENT
  Age: 21 Year
  Sex: Female
  Weight: 60 kg

DRUGS (2)
  1. REMICADE [Suspect]
     Active Substance: INFLIXIMAB
     Indication: Crohn^s disease
     Route: 041
     Dates: start: 2022
  2. INFLECTRA [Suspect]
     Active Substance: INFLIXIMAB-DYYB
     Indication: Crohn^s disease
     Dosage: 10 MG/KG 4 WEEKLY FOR THE NEXT 6 MONTH (DOSAGE TEXT: 10 MG/KG (600MG) 4 WEEKLY FOR NEXT 6 MONTH)
     Route: 065

REACTIONS (1)
  - Crohn^s disease [Unknown]
